FAERS Safety Report 5723789-8 (Version None)
Quarter: 2008Q2

REPORT INFORMATION
  Report Type: 
  Country: None (occurrence: None)
  Receive Date: 20080429
  Receipt Date: 20080429
  Transmission Date: 20081010
  Serious: Yes (Hospitalization)
  Sender: FDA-Public Use
  Company Number: None

PATIENT
  Sex: Male
  Weight: 96.3 kg

DRUGS (7)
  1. CARBOPLATIN [Suspect]
     Dosage: 1388 MG
  2. TAXOL [Suspect]
     Dosage: 452 MG
  3. ASPIRIN [Concomitant]
  4. FLOMAX [Concomitant]
  5. NITROQUIK [Concomitant]
  6. SIMVASTATIN [Concomitant]
  7. THORAZINE [Concomitant]

REACTIONS (4)
  - DYSPHAGIA [None]
  - LYMPHOPENIA [None]
  - PNEUMONIA [None]
  - TACHYCARDIA [None]
